FAERS Safety Report 5318850-6 (Version None)
Quarter: 2007Q2

REPORT INFORMATION
  Report Type: 
  Country: None (occurrence: None)
  Receive Date: 20070508
  Receipt Date: 20070502
  Transmission Date: 20071010
  Serious: Yes (Life-Threatening, Hospitalization)
  Sender: FDA-Public Use
  Company Number: FRWYE575103MAY07

PATIENT
  Age: 3 Year
  Sex: Male
  Weight: 17 kg

DRUGS (2)
  1. ADVIL [Suspect]
     Indication: INFLUENZA
     Dosage: 510 MG TOTAL DAILY
     Route: 048
     Dates: start: 20070127, end: 20070129
  2. DOLIPRANE [Concomitant]
     Indication: INFLUENZA
     Dosage: 1020 MG TOTAL DAILY
     Route: 048
     Dates: start: 20070127, end: 20070129

REACTIONS (5)
  - CARDIAC ARREST [None]
  - MYOCARDITIS [None]
  - PURPURA FULMINANS [None]
  - SKIN NECROSIS [None]
  - TOXIC SHOCK SYNDROME STREPTOCOCCAL [None]
